FAERS Safety Report 7469639-3 (Version None)
Quarter: 2011Q2

REPORT INFORMATION
  Report Type: 
  Country: None (occurrence: None)
  Receive Date: 20110510
  Receipt Date: 20110506
  Transmission Date: 20111010
  Serious: Yes (Death, Other)
  Sender: FDA-Public Use
  Company Number: GB-ASTRAZENECA-2011SE14485

PATIENT
  Age: 62 Year
  Sex: Female
  Weight: 58.4 kg

DRUGS (2)
  1. IRESSA [Suspect]
     Indication: NON-SMALL CELL LUNG CANCER
     Route: 048
     Dates: start: 20101001, end: 20110225
  2. IRESSA [Suspect]
     Indication: EPIDERMAL GROWTH FACTOR RECEPTOR INCREASED
     Route: 048
     Dates: start: 20101001, end: 20110225

REACTIONS (10)
  - RESTLESSNESS [None]
  - NON-SMALL CELL LUNG CANCER METASTATIC [None]
  - CONFUSIONAL STATE [None]
  - DYSARTHRIA [None]
  - DISEASE PROGRESSION [None]
  - AGITATION [None]
  - ENCEPHALOPATHY [None]
  - CEREBRAL ISCHAEMIA [None]
  - COGNITIVE DISORDER [None]
  - VIITH NERVE PARALYSIS [None]
